FAERS Safety Report 23104056 (Version 2)
Quarter: 2024Q1

REPORT INFORMATION
  Report Type: Spontaneous
  Country: US (occurrence: US)
  Receive Date: 20231025
  Receipt Date: 20240119
  Transmission Date: 20240409
  Serious: Yes (Other)
  Sender: FDA-Public Use
  Company Number: US-CYCLE PHARMACEUTICALS LTD-2023-CYC-000090

PATIENT

DRUGS (1)
  1. TASCENSO ODT [Suspect]
     Active Substance: FINGOLIMOD LAURYL SULFATE
     Indication: Multiple sclerosis
     Dosage: 0.5 MG, QD
     Route: 048
     Dates: start: 20230324, end: 20230629

REACTIONS (1)
  - Basal cell carcinoma [Recovered/Resolved]

NARRATIVE: CASE EVENT DATE: 20230620
